FAERS Safety Report 9785759 (Version 3)
Quarter: 2014Q1

REPORT INFORMATION
  Report Type: Spontaneous
  Country: DE (occurrence: None)
  Receive Date: 20131223
  Receipt Date: 20140127
  Transmission Date: 20141002
  Serious: Yes (Hospitalization, Other)
  Sender: FDA-Public Use
  Company Number: 1312-1605

PATIENT
  Age: 85 Year
  Sex: Female

DRUGS (5)
  1. EYLEA (AFLIBERCEPT) (SOLUTION FOR INJECTION) (AFLIBERCEPT) [Suspect]
     Indication: AGE-RELATED MACULAR DEGENERATION
     Route: 031
     Dates: start: 20131022
  2. LEVOTHYROX (LEVOTHYROXINE SODIUM) [Concomitant]
  3. MONO-TILDIEM-SLOW RELEASE (DILTIAZEM HYDROCHLORIDE) [Concomitant]
  4. CRESTOR (ROSUVASTATIN CALCIUM) [Concomitant]
  5. DOLIPRANE (PARACETAMOL) [Concomitant]

REACTIONS (6)
  - Angioedema [None]
  - Arthralgia [None]
  - Hypersensitivity vasculitis [None]
  - Rhinitis [None]
  - Pyrexia [None]
  - Asthenia [None]
